FAERS Safety Report 8764641 (Version 2)
Quarter: 2012Q4

REPORT INFORMATION
  Report Type: 
  Country: GB (occurrence: GB)
  Receive Date: 20120831
  Receipt Date: 20120920
  Transmission Date: 20130627
  Serious: Yes (Other)
  Sender: FDA-Public Use
  Company Number: GB-TEVA-355893ISR

PATIENT
  Age: 53 Year
  Sex: Male
  Weight: 72 kg

DRUGS (8)
  1. RAMIPRIL [Suspect]
  2. ASPIRIN [Concomitant]
     Route: 048
  3. BISOPROLOL [Concomitant]
     Route: 048
  4. CETIRIZINE [Concomitant]
     Route: 048
  5. PERINDOPRIL [Concomitant]
  6. TERBINAFINE HYDROCHLORIDE [Concomitant]
     Route: 061
  7. PROCHLORPERAZINE MALEATE [Concomitant]
  8. ATORVASTATIN [Concomitant]
     Route: 048

REACTIONS (5)
  - Neck pain [Unknown]
  - Chest pain [Unknown]
  - Musculoskeletal pain [Unknown]
  - Product substitution issue [Unknown]
  - Vertigo [Unknown]
